FAERS Safety Report 9522396 (Version 1)
Quarter: 2013Q1

REPORT INFORMATION
  Report Type: Spontaneous
  Country: US (occurrence: None)
  Receive Date: 20130305
  Receipt Date: 20130305
  Transmission Date: 20140127
  Serious: Yes (Hospitalization)
  Sender: FDA-Public Use
  Company Number: 163-21880-12031702

PATIENT
  Age: 75 Year
  Sex: Male
  Weight: 96.62 kg

DRUGS (8)
  1. REVLIMID (LENALIDOMIDE) (25 MILLIGRAM, CAPSULES) [Suspect]
     Indication: LYMPHOMA
     Route: 048
     Dates: start: 20120223, end: 20120314
  2. ZEBETA (BISOPROLOL FUMARATE) [Concomitant]
  3. MOTRIN (IBUPROFEN) [Concomitant]
  4. COLACE (DOCUSATE SODIUM) [Concomitant]
  5. PEPCID (FAMOTIDINE) [Concomitant]
  6. ASA (ACETYLSALICYLIC ACID) [Concomitant]
  7. PREDNISONE (PREDNISONE) [Concomitant]
  8. RITUXAN (RITUXIMAB) [Concomitant]

REACTIONS (5)
  - Pneumonia [None]
  - Dyspnoea [None]
  - Nasopharyngitis [None]
  - Cough [None]
  - Anaemia [None]
